FAERS Safety Report 12438638 (Version 1)
Quarter: 2016Q2

REPORT INFORMATION
  Report Type: Spontaneous
  Country: IT (occurrence: IT)
  Receive Date: 20160606
  Receipt Date: 20160606
  Transmission Date: 20160815
  Serious: Yes (Death)
  Sender: FDA-Public Use
  Company Number: IT-AKORN PHARMACEUTICALS-2016AKN00325

PATIENT
  Age: 71 Year
  Sex: Male

DRUGS (3)
  1. ETHAMBUTOL [Suspect]
     Active Substance: ETHAMBUTOL HYDROCHLORIDE
     Indication: SILICOTUBERCULOSIS
     Dosage: 1200 MG, 1X/DAY
     Route: 065
  2. RIFAMPICIN [Concomitant]
     Active Substance: RIFAMPIN
     Dosage: 600 MG, 1X/DAY
     Route: 065
  3. ISONIAZID. [Concomitant]
     Active Substance: ISONIAZID
     Dosage: 300 MG, 1X/DAY
     Route: 065

REACTIONS (1)
  - Autoimmune haemolytic anaemia [Fatal]
